FAERS Safety Report 8934371 (Version 1)
Quarter: 2012Q4

REPORT INFORMATION
  Report Type: Report from Study
  Country: CZ (occurrence: CZ)
  Receive Date: 20121129
  Receipt Date: 20121129
  Transmission Date: 20130627
  Serious: Yes (Other)
  Sender: FDA-Public Use
  Company Number: CZ-TEVA-371155ISR

PATIENT
  Age: 68 Year
  Sex: Male
  Weight: 131 kg

DRUGS (11)
  1. OXALIPLATIN [Suspect]
     Indication: NEOPLASM
     Dosage: 85 mg/m2 Daily;
     Route: 042
     Dates: start: 20121004
  2. BEVACIZUMAB [Suspect]
     Indication: NEOPLASM
     Dosage: 5 microg/kg Daily;
     Route: 042
     Dates: start: 20121004
  3. LEUCOVORIN [Suspect]
     Indication: NEOPLASM
     Route: 042
     Dates: start: 20121004
  4. 5-FLUOROURACIL [Suspect]
     Indication: NEOPLASM
     Route: 040
     Dates: start: 20121004
  5. 5-FLUOROURACIL [Suspect]
     Dosage: 400 mg/m2 Daily;
     Route: 042
     Dates: start: 20121004
  6. ONDANSETRON [Concomitant]
     Dates: start: 20121004, end: 20121004
  7. DEXAMETHASONE [Concomitant]
     Dates: start: 20121004, end: 20121004
  8. CALCIUM CHLORIDE [Concomitant]
     Dates: start: 20121004, end: 20121004
  9. MAGNESIUM SULPHATE [Concomitant]
     Dates: start: 20121004, end: 20121004
  10. PRESTARIUM [Concomitant]
  11. TULIP [Concomitant]
     Dates: start: 2011

REACTIONS (1)
  - Atrial fibrillation [Not Recovered/Not Resolved]
